FAERS Safety Report 6791264-8 (Version None)
Quarter: 2010Q2

REPORT INFORMATION
  Report Type: 
  Country: None (occurrence: None)
  Receive Date: 20100624
  Receipt Date: 20100614
  Transmission Date: 20101027
  Serious: Yes (Hospitalization)
  Sender: FDA-Public Use
  Company Number: US-WATSON-2010-08349

PATIENT
  Age: 47 Year
  Sex: Female

DRUGS (3)
  1. PREDNISONE TAB [Suspect]
     Indication: LUPUS NEPHRITIS
     Dosage: UNK
  2. AZATHIOPRINE [Suspect]
     Indication: LUPUS NEPHRITIS
     Dosage: UNK
  3. MYCOPHENOLATE MOFETIL [Suspect]
     Indication: LUPUS NEPHRITIS
     Dosage: UNK

REACTIONS (14)
  - ANTINUCLEAR ANTIBODY POSITIVE [None]
  - APHASIA [None]
  - ASTHENIA [None]
  - ATAXIA [None]
  - BALANCE DISORDER [None]
  - CLUMSINESS [None]
  - CONFUSIONAL STATE [None]
  - DEMYELINATION [None]
  - GAIT DISTURBANCE [None]
  - JC VIRUS INFECTION [None]
  - LEUKOPENIA [None]
  - PARAESTHESIA [None]
  - PROGRESSIVE MULTIFOCAL LEUKOENCEPHALOPATHY [None]
  - SPEECH DISORDER [None]
